FAERS Safety Report 4432578-6 (Version None)
Quarter: 2004Q3

REPORT INFORMATION
  Report Type: 
  Country: None (occurrence: None)
  Receive Date: 20040820
  Receipt Date: 20040809
  Transmission Date: 20050211
  Serious: Yes (Other)
  Sender: FDA-Public Use
  Company Number: SUSI-2004-00457

PATIENT
  Age: 12 Year
  Sex: Male
  Weight: 80 kg

DRUGS (2)
  1. ADDERALL XR(AMPHETAMINE ASPARATE, AMPHETAMINE SULFATE, DEXTROAMPHETAMI [Suspect]
     Indication: ATTENTION DEFICIT/HYPERACTIVITY DISORDER
     Dosage: 30 MG, 1X/DAY, QD,ORAL
     Route: 048
     Dates: end: 20040812
  2. D AMPHETAMINE SALT COMBO [Suspect]
     Indication: ATTENTION DEFICIT/HYPERACTIVITY DISORDER
     Dosage: 10 MG, 1X/DAY, QD, ORAL
     Route: 048
     Dates: end: 20040808

REACTIONS (1)
  - TIC [None]
